FAERS Safety Report 13195523 (Version 1)
Quarter: 2017Q1

REPORT INFORMATION
  Report Type: Spontaneous
  Country: CA (occurrence: CA)
  Receive Date: 20170208
  Receipt Date: 20170208
  Transmission Date: 20170428
  Serious: Yes (Other)
  Sender: FDA-Public Use
  Company Number: CA-TEVA-737907ACC

PATIENT
  Sex: Female
  Weight: 87.17 kg

DRUGS (2)
  1. METFORMIN [Suspect]
     Active Substance: METFORMIN HYDROCHLORIDE
     Indication: TYPE 2 DIABETES MELLITUS
     Dosage: 500 MILLIGRAM DAILY;
     Route: 048
  2. GLICLAZIDE MR [Concomitant]
     Active Substance: GLICLAZIDE

REACTIONS (1)
  - Erythema multiforme [Recovered/Resolved]
